FAERS Safety Report 23179034 (Version 1)
Quarter: 2023Q4

REPORT INFORMATION
  Report Type: Spontaneous
  Country: PT (occurrence: PT)
  Receive Date: 20231113
  Receipt Date: 20231113
  Transmission Date: 20240110
  Serious: Yes (Hospitalization)
  Sender: FDA-Public Use
  Company Number: None

PATIENT
  Age: 71 Year
  Sex: Male

DRUGS (10)
  1. RITUXIMAB [Suspect]
     Active Substance: RITUXIMAB
     Indication: Non-Hodgkin^s lymphoma
     Dosage: EVERY 6 MONTHS
     Route: 042
     Dates: start: 20190601
  2. DIGOXIN [Concomitant]
     Active Substance: DIGOXIN
     Dosage: 0.125 MG ID
     Route: 048
  3. ALLOPURINOL [Concomitant]
     Active Substance: ALLOPURINOL
     Dosage: 100 MG ID
     Route: 048
  4. PANTOPRAZOLE [Concomitant]
     Active Substance: PANTOPRAZOLE
     Dosage: 40 MG ID
     Route: 048
  5. CALCIUM CARBONATE\CHOLECALCIFEROL [Concomitant]
     Active Substance: CALCIUM CARBONATE\CHOLECALCIFEROL
     Dosage: 1 TABLET ID
     Route: 048
  6. URSODIOL [Concomitant]
     Active Substance: URSODIOL
     Dosage: 250 MG 12/12 HOURS
     Route: 048
  7. EDOXABAN [Concomitant]
     Active Substance: EDOXABAN
     Dosage: 60 MG ID
     Route: 048
  8. FUROSEMIDE [Concomitant]
     Active Substance: FUROSEMIDE
     Dosage: 40 MG ID
     Route: 048
  9. BUDESONIDE\FORMOTEROL FUMARATE DIHYDRATE [Concomitant]
     Active Substance: BUDESONIDE\FORMOTEROL FUMARATE DIHYDRATE
     Dosage: 2 PUFFS, IN SOS, UP TO 3X PER DAY
     Route: 055
  10. VOKANAMET [CANAGLIFLOZIN;METFORMIN HYDROCHLORIDE] [Concomitant]
     Dosage: 1 TAB 12/12 HOURS
     Route: 048

REACTIONS (2)
  - Organising pneumonia [Recovered/Resolved]
  - Respiratory failure [Unknown]

NARRATIVE: CASE EVENT DATE: 20230901
